FAERS Safety Report 15009988 (Version 1)
Quarter: 2018Q2

REPORT INFORMATION
  Report Type: Spontaneous
  Country: US (occurrence: US)
  Receive Date: 20180614
  Receipt Date: 20180614
  Transmission Date: 20180711
  Serious: No
  Sender: FDA-Public Use
  Company Number: US-PFIZER INC-2018242221

PATIENT
  Age: 21 Year
  Sex: Male

DRUGS (4)
  1. VINBLASTINE [Suspect]
     Active Substance: VINBLASTINE
     Dosage: 10 MG, WEEKLY
     Dates: start: 20130624, end: 20130819
  2. VINBLASTINE [Suspect]
     Active Substance: VINBLASTINE
     Indication: DESMOID TUMOUR
     Dosage: 10 MG, WEEKLY
     Route: 042
     Dates: start: 20130204, end: 20130617
  3. METHOTREXATE SODIUM. [Suspect]
     Active Substance: METHOTREXATE SODIUM
     Indication: DESMOID TUMOUR
     Dosage: 9 MG, (EVERY 3 WEEKS)
     Route: 042
     Dates: start: 20030204, end: 20130624
  4. METHOTREXATE SODIUM. [Suspect]
     Active Substance: METHOTREXATE SODIUM
     Dosage: UNK
     Dates: end: 20130708

REACTIONS (3)
  - Drug hypersensitivity [Unknown]
  - Stomatitis [Recovered/Resolved]
  - Mucosal inflammation [Unknown]

NARRATIVE: CASE EVENT DATE: 20130311
